FAERS Safety Report 21197456 (Version 2)
Quarter: 2023Q1

REPORT INFORMATION
  Report Type: Spontaneous
  Country: US (occurrence: US)
  Receive Date: 20220810
  Receipt Date: 20230210
  Transmission Date: 20230417
  Serious: No
  Sender: FDA-Public Use
  Company Number: US-SA-SAC20220809001214

PATIENT
  Sex: Female

DRUGS (1)
  1. DUPIXENT [Suspect]
     Active Substance: DUPILUMAB
     Indication: Dermatitis atopic
     Dosage: 300 MG, QOW
     Route: 058
     Dates: start: 20200820

REACTIONS (9)
  - Hyperhidrosis [Unknown]
  - Skin odour abnormal [Unknown]
  - Hypertrichosis [Unknown]
  - Hot flush [Unknown]
  - Burning sensation [Unknown]
  - Erythema [Unknown]
  - Swelling face [Unknown]
  - Nervousness [Unknown]
  - Pruritus [Unknown]
